FAERS Safety Report 5347059-5 (Version None)
Quarter: 2007Q2

REPORT INFORMATION
  Report Type: 
  Country: None (occurrence: None)
  Receive Date: 20070604
  Receipt Date: 20070524
  Transmission Date: 20071010
  Serious: Yes (Hospitalization)
  Sender: FDA-Public Use
  Company Number: 2006-02419

PATIENT
  Age: 69 Year
  Sex: Male
  Weight: 66 kg

DRUGS (31)
  1. VELCADE [Suspect]
     Indication: MULTIPLE MYELOMA
     Dosage: 1.00 MG/M2, INTRAVENOUS
     Route: 042
     Dates: start: 20060322, end: 20060401
  2. VELCADE [Suspect]
     Indication: MULTIPLE MYELOMA
     Dosage: 1.00 MG/M2, INTRAVENOUS
     Route: 042
     Dates: start: 20060215
  3. MELPHALAN(MELPHALAN) VIAL [Suspect]
     Indication: MULTIPLE MYELOMA
     Dosage: 200.00 MG/M2, INTRAVENOUS
     Route: 042
     Dates: start: 20060804, end: 20060804
  4. MELPHALAN(MELPHALAN) VIAL [Suspect]
     Indication: MULTIPLE MYELOMA
     Dosage: 200.00 MG/M2, INTRAVENOUS
     Route: 042
     Dates: start: 20060503
  5. DEXAMETHASONE [Suspect]
     Indication: MULTIPLE MYELOMA
     Dosage: 40.00 MG
     Dates: start: 20060218, end: 20060325
  6. DEXAMETHASONE [Suspect]
     Indication: MULTIPLE MYELOMA
     Dosage: 40.00 MG
     Dates: start: 20060322, end: 20060418
  7. CISPLATIN [Suspect]
     Indication: MULTIPLE MYELOMA
     Dosage: 10.00 MG/M2, INTRAVENOUS
     Route: 042
     Dates: start: 20060325, end: 20060325
  8. CISPLATIN [Suspect]
     Indication: MULTIPLE MYELOMA
     Dosage: 10.00 MG/M2, INTRAVENOUS
     Route: 042
     Dates: start: 20060215
  9. DOXORUBICIN HCL [Suspect]
     Indication: MULTIPLE MYELOMA
     Dosage: 10.00 MG/M2, INTRAVENOUS
     Route: 042
     Dates: start: 20060325, end: 20060325
  10. DOXORUBICIN HCL [Suspect]
     Indication: MULTIPLE MYELOMA
     Dosage: 10.00 MG/M2, INTRAVENOUS
     Route: 042
     Dates: start: 20060215
  11. THALIDOMIDE [Suspect]
     Indication: MULTIPLE MYELOMA
     Dosage: SEE IMAGE
     Route: 048
     Dates: end: 20060418
  12. THALIDOMIDE [Suspect]
     Indication: MULTIPLE MYELOMA
     Dosage: SEE IMAGE
     Route: 048
     Dates: start: 20060101
  13. THALIDOMIDE [Suspect]
     Indication: MULTIPLE MYELOMA
     Dosage: SEE IMAGE
     Route: 048
     Dates: start: 20060218
  14. THALIDOMIDE [Suspect]
     Indication: MULTIPLE MYELOMA
     Dosage: SEE IMAGE
     Route: 048
     Dates: start: 20060322
  15. CYCLOPHOSPHAMIDE [Suspect]
     Indication: MULTIPLE MYELOMA
     Dosage: 400.00 MG/M2, INTRAVENOUS
     Route: 042
     Dates: start: 20060325, end: 20060325
  16. CYCLOPHOSPHAMIDE [Suspect]
     Indication: MULTIPLE MYELOMA
     Dosage: 400.00 MG/M2, INTRAVENOUS
     Route: 042
     Dates: start: 20060215
  17. ETOPOSIDE [Suspect]
     Indication: MULTIPLE MYELOMA
     Dosage: 40.00 MG/M2, INTRAVENOUS
     Route: 042
     Dates: start: 20060325, end: 20060325
  18. ETOPOSIDE [Suspect]
     Indication: MULTIPLE MYELOMA
     Dosage: 40.00 MG/M2, INTRAVENOUS
     Route: 042
     Dates: start: 20060215
  19. ZOLOFT [Concomitant]
  20. PROTONIX [Concomitant]
  21. IMODIUM [Concomitant]
  22. PROCRIT [Concomitant]
  23. FOLIC ACID [Concomitant]
  24. POTASSIUM CHLORIDE [Concomitant]
  25. ACYCLOVIR [Concomitant]
  26. COLESTID [Concomitant]
  27. MAGIC MOUTHWASH [Concomitant]
  28. FLOMAX [Concomitant]
  29. PROSCAR [Concomitant]
  30. DETROL [Concomitant]
  31. LEVAQUIN [Concomitant]

REACTIONS (5)
  - COLITIS [None]
  - DIARRHOEA [None]
  - MUCOSAL INFLAMMATION [None]
  - ORAL INTAKE REDUCED [None]
  - RENAL FAILURE [None]
